APPROVED DRUG PRODUCT: AZDONE
Active Ingredient: ASPIRIN; HYDROCODONE BITARTRATE
Strength: 500MG;5MG **Federal Register determination that product was not discontinued or withdrawn for safety or effectiveness reasons**
Dosage Form/Route: TABLET;ORAL
Application: A089420 | Product #001
Applicant: SCHWARZ PHARMA INC
Approved: Jan 25, 1988 | RLD: No | RS: No | Type: DISCN